FAERS Safety Report 18904255 (Version 1)
Quarter: 2021Q1

REPORT INFORMATION
  Report Type: Spontaneous
  Country: US (occurrence: US)
  Receive Date: 20210217
  Receipt Date: 20210217
  Transmission Date: 20210420
  Serious: Yes (Life-Threatening, Hospitalization, Other)
  Sender: FDA-Public Use
  Company Number: None

PATIENT
  Age: 60 Year
  Sex: Male
  Weight: 84 kg

DRUGS (1)
  1. GLUCAGON (GLUCAGON 1MG/VIL INJ) [Suspect]
     Active Substance: GLUCAGON
     Indication: HYPOGLYCAEMIA
     Route: 030
     Dates: start: 20201023, end: 20201023

REACTIONS (1)
  - Anaphylactic reaction [None]

NARRATIVE: CASE EVENT DATE: 20201022
